FAERS Safety Report 11188825 (Version 1)
Quarter: 2015Q2

REPORT INFORMATION
  Report Type: Spontaneous
  Country: US (occurrence: None)
  Receive Date: 20150611
  Receipt Date: 20150611
  Transmission Date: 20150821
  Serious: Yes (Hospitalization)
  Sender: FDA-Public Use
  Company Number: 2015ST000096

PATIENT
  Age: 28 Year
  Sex: Female
  Weight: 65.8 kg

DRUGS (14)
  1. DILAUDID [Concomitant]
     Active Substance: HYDROMORPHONE HYDROCHLORIDE
  2. STERILE WATER (WATER FOR INJECTION) [Concomitant]
  3. LEVAQUIN [Concomitant]
     Active Substance: LEVOFLOXACIN
  4. BERINERT (COMPLEMENT C1 ESTERASE INHIBITOR) [Concomitant]
  5. ZOFRAN [Concomitant]
     Active Substance: ONDANSETRON HYDROCHLORIDE
  6. KEFLEX /00145501/ (CEFALEXIN) [Concomitant]
  7. KALBITOR [Concomitant]
     Active Substance: ECALLANTIDE
  8. RUCONEST [Suspect]
     Active Substance: HUMAN C1-ESTERASE INHIBITOR
     Indication: ENZYME LEVEL DECREASED
     Dates: start: 20150227
  9. CEFACLOR (CEFACLOR) [Concomitant]
  10. SOCIUM CHLORIDE (SODIUM CHLORIDE) [Concomitant]
  11. NEXIUM [Concomitant]
     Active Substance: ESOMEPRAZOLE MAGNESIUM
  12. EPIPEN [Concomitant]
     Active Substance: EPINEPHRINE
  13. NEURONTIN (GABAPENTIN) CAPSULE [Concomitant]
  14. DEPO-PROVERA [Concomitant]
     Active Substance: MEDROXYPROGESTERONE ACETATE

REACTIONS (1)
  - Oral candidiasis [None]

NARRATIVE: CASE EVENT DATE: 20150520
